FAERS Safety Report 20366046 (Version 2)
Quarter: 2024Q1

REPORT INFORMATION
  Report Type: Spontaneous
  Country: US (occurrence: US)
  Receive Date: 20220123
  Receipt Date: 20240320
  Transmission Date: 20240410
  Serious: No
  Sender: FDA-Public Use
  Company Number: US-BIOGEN-2019BI00746933

PATIENT
  Age: 62 Year
  Sex: Female

DRUGS (10)
  1. AMPYRA [Suspect]
     Active Substance: DALFAMPRIDINE
     Indication: Gait disturbance
     Dosage: UNK
     Route: 065
  2. AVONEX [Suspect]
     Active Substance: INTERFERON BETA-1A
     Indication: Multiple sclerosis
     Dosage: 30 MICROGRAM, WEEKLY
     Route: 065
     Dates: start: 20190601
  3. AVONEX [Suspect]
     Active Substance: INTERFERON BETA-1A
     Dosage: 30 MICROGRAM, WEEKLY
     Route: 042
     Dates: start: 20190601
  4. AVONEX [Suspect]
     Active Substance: INTERFERON BETA-1A
     Dosage: INJECT 1 PREFILLED SYRINGE INTRAMUSCULARLY ONCE WEEKLY
     Route: 030
     Dates: start: 2020, end: 20210111
  5. TYSABRI [Suspect]
     Active Substance: NATALIZUMAB
     Indication: Multiple sclerosis
     Dosage: 300 MILLIGRAM, MONTHLY
     Route: 065
     Dates: start: 20210618
  6. SYNTHROID [Concomitant]
     Active Substance: LEVOTHYROXINE SODIUM
     Indication: Product used for unknown indication
     Dosage: UNK
     Route: 065
  7. AMLODIPINE [Concomitant]
     Active Substance: AMLODIPINE BESYLATE
     Indication: Product used for unknown indication
     Dosage: UNK
     Route: 065
  8. METOPROLOL TARTRATE [Concomitant]
     Active Substance: METOPROLOL TARTRATE
     Indication: Product used for unknown indication
     Dosage: UNK
     Route: 065
  9. PREGABALIN [Concomitant]
     Active Substance: PREGABALIN
     Indication: Product used for unknown indication
     Dosage: UNK
     Route: 065
  10. LYRICA [Concomitant]
     Active Substance: PREGABALIN
     Indication: Product used for unknown indication
     Dosage: UNK
     Route: 065

REACTIONS (4)
  - Influenza like illness [Recovered/Resolved]
  - Pain in extremity [Recovered/Resolved]
  - Multiple sclerosis [Not Recovered/Not Resolved]
  - Gait disturbance [Recovered/Resolved]

NARRATIVE: CASE EVENT DATE: 20190601
